FAERS Safety Report 8434787-8 (Version None)
Quarter: 2012Q2

REPORT INFORMATION
  Report Type: 
  Country: None (occurrence: None)
  Receive Date: 20120608
  Receipt Date: 20120608
  Transmission Date: 20120825
  Serious: Yes (Other)
  Sender: FDA-Public Use
  Company Number: None

PATIENT

DRUGS (9)
  1. PROZAC [Suspect]
  2. ESTRIDAL [Concomitant]
  3. PROZAC [Suspect]
  4. FISH OIL [Concomitant]
  5. PROZAC [Suspect]
  6. PROZAC [Suspect]
  7. PROZAC [Suspect]
     Indication: INFLUENZA LIKE ILLNESS
     Dosage: 2 CAPSULES - 40MG, ONCE PER DAY
     Dates: start: 20120602, end: 20120602
  8. CLONAZEPAM [Concomitant]
  9. PRILOSEC [Concomitant]

REACTIONS (11)
  - OROPHARYNGEAL PAIN [None]
  - RETCHING [None]
  - FAECES DISCOLOURED [None]
  - RHINORRHOEA [None]
  - COLD SWEAT [None]
  - PRODUCT SUBSTITUTION ISSUE [None]
  - TINNITUS [None]
  - DRUG WITHDRAWAL SYNDROME [None]
  - NAUSEA [None]
  - VOMITING [None]
  - DIZZINESS [None]
